FAERS Safety Report 17454716 (Version 1)
Quarter: 2020Q1

REPORT INFORMATION
  Report Type: Report from Study
  Country: IT (occurrence: IT)
  Receive Date: 20200225
  Receipt Date: 20200225
  Transmission Date: 20200409
  Serious: Yes (Other)
  Sender: FDA-Public Use
  Company Number: IT-ROCHE-2554556

PATIENT
  Age: 32 Year
  Sex: Male

DRUGS (6)
  1. CLONAZEPAM. [Suspect]
     Active Substance: CLONAZEPAM
     Indication: BIPOLAR I DISORDER
     Route: 048
     Dates: start: 20200121, end: 20200123
  2. EUTIROX [Concomitant]
     Active Substance: LEVOTHYROXINE SODIUM
  3. TOPAMAX [Concomitant]
     Active Substance: TOPIRAMATE
  4. COLECALCIFEROL [Concomitant]
     Active Substance: CHOLECALCIFEROL
  5. CARBOLITHIUM [Concomitant]
     Active Substance: LITHIUM CARBONATE
  6. SEQUACOR [Concomitant]
     Active Substance: BISOPROLOL

REACTIONS (5)
  - Hypotension [Recovering/Resolving]
  - Off label use [Unknown]
  - Asthenia [Recovering/Resolving]
  - Presyncope [Recovering/Resolving]
  - Product use in unapproved indication [Unknown]

NARRATIVE: CASE EVENT DATE: 20200123
